FAERS Safety Report 5124890-2 (Version None)
Quarter: 2006Q4

REPORT INFORMATION
  Report Type: 
  Country: None (occurrence: None)
  Receive Date: 20061011
  Receipt Date: 20060929
  Transmission Date: 20070319
  Serious: Yes (Hospitalization)
  Sender: FDA-Public Use
  Company Number: FR-AMGEN-UK195155

PATIENT
  Sex: Female

DRUGS (1)
  1. DARBEPOETIN ALFA [Suspect]
     Indication: DIALYSIS
     Route: 040
     Dates: start: 20060701

REACTIONS (5)
  - ACUTE PULMONARY OEDEMA [None]
  - AORTIC VALVE SCLEROSIS [None]
  - CORONARY ARTERY STENOSIS [None]
  - DIALYSIS [None]
  - HYPERKALAEMIA [None]
